FAERS Safety Report 25521989 (Version 1)
Quarter: 2025Q3

REPORT INFORMATION
  Report Type: Spontaneous
  Country: CN (occurrence: CN)
  Receive Date: 20250706
  Receipt Date: 20250706
  Transmission Date: 20251020
  Serious: Yes (Hospitalization, Disabling)
  Sender: ABBVIE
  Company Number: CN-ABBVIE-6356058

PATIENT
  Age: 59 Year
  Sex: Female
  Weight: 55 kg

DRUGS (4)
  1. VENETOCLAX [Suspect]
     Active Substance: VENETOCLAX
     Indication: Neoplasm malignant
     Route: 048
     Dates: start: 20250606, end: 20250606
  2. VENETOCLAX [Suspect]
     Active Substance: VENETOCLAX
     Indication: Neoplasm malignant
     Route: 048
     Dates: start: 20250607, end: 20250607
  3. VENETOCLAX [Suspect]
     Active Substance: VENETOCLAX
     Indication: Neoplasm malignant
     Route: 048
     Dates: start: 20250608, end: 20250617
  4. AZACITIDINE [Suspect]
     Active Substance: AZACITIDINE
     Indication: Neoplasm malignant
     Route: 058
     Dates: start: 20250606, end: 20250612

REACTIONS (1)
  - Myelosuppression [Recovering/Resolving]

NARRATIVE: CASE EVENT DATE: 20250617
